FAERS Safety Report 7577611-8 (Version None)
Quarter: 2011Q2

REPORT INFORMATION
  Report Type: 
  Country: None (occurrence: None)
  Receive Date: 20110628
  Receipt Date: 20100830
  Transmission Date: 20111010
  Serious: No
  Sender: FDA-Public Use
  Company Number: US-KINGPHARMUSA00001-K201001093

PATIENT
  Age: 47 Year
  Sex: Female

DRUGS (2)
  1. FLORASTOR [Concomitant]
     Indication: PROBIOTIC THERAPY
     Dosage: UNK
  2. BICILLIN L-A [Suspect]
     Indication: LYME DISEASE
     Dosage: 1.2 MILLION UNIT, BIW
     Route: 030
     Dates: start: 20100729, end: 20100829

REACTIONS (16)
  - DYSSTASIA [None]
  - NEUROPATHY PERIPHERAL [None]
  - DECREASED APPETITE [None]
  - HEADACHE [None]
  - ARTHRALGIA [None]
  - NAUSEA [None]
  - MOBILITY DECREASED [None]
  - POLLAKIURIA [None]
  - DIZZINESS [None]
  - PYREXIA [None]
  - MUSCLE RIGIDITY [None]
  - MYALGIA [None]
  - TREMOR [None]
  - CHILLS [None]
  - HYPOAESTHESIA [None]
  - MUSCLE SPASMS [None]
